FAERS Safety Report 17977060 (Version 2)
Quarter: 2020Q3

REPORT INFORMATION
  Report Type: Other
  Country: RU (occurrence: RU)
  Receive Date: 20200703
  Receipt Date: 20200715
  Transmission Date: 20201103
  Serious: Yes (Other)
  Sender: FDA-Public Use
  Company Number: RU-EMD SERONO-9171758

PATIENT
  Age: 66 Year
  Sex: Female
  Weight: 119 kg

DRUGS (7)
  1. GLICLAZIDE [Concomitant]
     Active Substance: GLICLAZIDE
     Indication: TYPE 2 DIABETES MELLITUS
  2. METFORMIN [Suspect]
     Active Substance: METFORMIN HYDROCHLORIDE
     Indication: TYPE 2 DIABETES MELLITUS
  3. INSULIN ASPART [Concomitant]
     Active Substance: INSULIN ASPART
     Indication: TYPE 2 DIABETES MELLITUS
     Dosage: 10?12 UNITS BEFORE MAIN MEALS?THERAPY START DATE: 2019
  4. INSULIN ASPART [Concomitant]
     Active Substance: INSULIN ASPART
     Dosage: INCREASED THE DOSE?DAILY DOSE: 90 UNITS
  5. INSULIN DETEMIR [Concomitant]
     Active Substance: INSULIN DETEMIR
     Dosage: INCREASED THE DOSE?DAILY DOSE OF 90 UNITS
  6. GLIBENCLAMIDE [Concomitant]
     Active Substance: GLYBURIDE
     Indication: TYPE 2 DIABETES MELLITUS
  7. INSULIN DETEMIR [Concomitant]
     Active Substance: INSULIN DETEMIR
     Indication: TYPE 2 DIABETES MELLITUS
     Dosage: 20 UNITS IN THE MORNING AND 20 UNITS IN THE EVENING?THERAPY START DATE: 2019

REACTIONS (12)
  - Myocardial fibrosis [Unknown]
  - Insulin resistance [Recovering/Resolving]
  - Hypoglycaemia [Recovered/Resolved]
  - Weight increased [Recovering/Resolving]
  - Cerebrovascular accident [Unknown]
  - Acute myocardial infarction [Unknown]
  - Cardiac failure chronic [Unknown]
  - Thirst [Recovered/Resolved]
  - Hyperglycaemia [Recovering/Resolving]
  - Increased appetite [Recovered/Resolved]
  - Dry mouth [Recovered/Resolved]
  - Pollakiuria [Recovered/Resolved]

NARRATIVE: CASE EVENT DATE: 2018
